FAERS Safety Report 18533869 (Version 1)
Quarter: 2020Q4

REPORT INFORMATION
  Report Type: Spontaneous
  Country: DK (occurrence: DK)
  Receive Date: 20201123
  Receipt Date: 20201123
  Transmission Date: 20210114
  Serious: Yes (Death)
  Sender: FDA-Public Use
  Company Number: DK-009507513-2011DNK012283

PATIENT
  Age: 58 Year
  Sex: Female

DRUGS (1)
  1. KEYTRUDA [Suspect]
     Active Substance: PEMBROLIZUMAB
     Indication: MALIGNANT MELANOMA
     Dosage: STRENGTH: 25 MG/ML. DOSAGE: 4 MG/KG AFTER TREATMENT SCHEDULE, 12 SERIALS
     Route: 042
     Dates: start: 20190801, end: 20200819

REACTIONS (5)
  - Cardiac arrest [Recovered/Resolved]
  - Myocarditis [Fatal]
  - Ventricular tachycardia [Unknown]
  - Cardiac arrest [Fatal]
  - Chest pain [Unknown]

NARRATIVE: CASE EVENT DATE: 202008
